FAERS Safety Report 16335911 (Version 9)
Quarter: 2020Q2

REPORT INFORMATION
  Report Type: Spontaneous
  Country: PL (occurrence: PL)
  Receive Date: 20190521
  Receipt Date: 20200527
  Transmission Date: 20200713
  Serious: Yes (Death, Hospitalization, Other)
  Sender: FDA-Public Use
  Company Number: PL-CELLTRION INC.-2019PL020682

PATIENT

DRUGS (21)
  1. VELCADE [Suspect]
     Active Substance: BORTEZOMIB
     Indication: DISEASE PROGRESSION
  2. MEROPENEM. [Suspect]
     Active Substance: MEROPENEM
     Indication: ADJUVANT THERAPY
     Dosage: UNK, DOSAGE FORM: UNSPECIFIED
     Route: 065
  3. CIPROFLOXACIN. [Suspect]
     Active Substance: CIPROFLOXACIN
     Indication: ADJUVANT THERAPY
     Dosage: UNK, DOSAGE FORM: UNSPECIFIED
     Route: 065
  4. LEUKERAN [Concomitant]
     Active Substance: CHLORAMBUCIL
     Indication: WALDENSTROM^S MACROGLOBULINAEMIA
     Dosage: UNK UNK, UNKNOWN FREQ..DOSAGE FORM: UNSPECIFIED
     Route: 065
  5. RITUXIMAB (UNKNOWN) [Suspect]
     Active Substance: RITUXIMAB
     Indication: WALDENSTROM^S MACROGLOBULINAEMIA
     Dosage: UNK;DOSAGE FORM: UNSPECIFIED
     Route: 065
     Dates: start: 2015
  6. AMIKACIN. [Suspect]
     Active Substance: AMIKACIN
     Indication: ADJUVANT THERAPY
     Dosage: UNK, DOSAGE FORM: UNSPECIFIED
     Route: 065
  7. BENDAMUSTINE [Concomitant]
     Active Substance: BENDAMUSTINE
     Indication: WALDENSTROM^S MACROGLOBULINAEMIA
     Dosage: UNK UNK, CYCLIC
     Route: 042
     Dates: start: 2015
  8. VELCADE [Suspect]
     Active Substance: BORTEZOMIB
     Indication: WALDENSTROM^S MACROGLOBULINAEMIA
     Dosage: UNK UNK, UNKNOWN FREQ.
     Route: 065
  9. ACICLOVIR [Suspect]
     Active Substance: ACYCLOVIR
     Indication: ADJUVANT THERAPY
     Dosage: UNK, DOSAGE FORM: UNSPECIFIED
     Route: 065
  10. DEXAMETHASONE. [Suspect]
     Active Substance: DEXAMETHASONE
     Indication: WALDENSTROM^S MACROGLOBULINAEMIA
     Dosage: UNK
     Route: 065
     Dates: start: 2015
  11. DEXAMETHASONE. [Suspect]
     Active Substance: DEXAMETHASONE
     Indication: DISEASE PROGRESSION
     Dosage: DOSAGE FORM: UNSPECIFIED
     Route: 065
  12. VALPROIC ACID. [Suspect]
     Active Substance: VALPROIC ACID
     Indication: EPILEPSY
     Dosage: UNK UNK, UNKNOWN FREQ.
     Route: 065
  13. VANCOMYCIN [Suspect]
     Active Substance: VANCOMYCIN
     Indication: ADJUVANT THERAPY
     Dosage: UNK, DOSAGE FORM: UNSPECIFIED
     Route: 065
  14. FLUCONAZOLE. [Suspect]
     Active Substance: FLUCONAZOLE
     Indication: ADJUVANT THERAPY
     Dosage: UNK, DOSAGE FORM: UNSPECIFIED
     Route: 065
  15. CEFEPIME [Suspect]
     Active Substance: CEFEPIME HYDROCHLORIDE
     Indication: ADJUVANT THERAPY
     Dosage: UNK, DOSAGE FORM: UNSPECIFIED
     Route: 065
  16. THALIDOMIDE [Concomitant]
     Active Substance: THALIDOMIDE
     Indication: WALDENSTROM^S MACROGLOBULINAEMIA
     Dosage: UNK
     Route: 065
     Dates: start: 2015
  17. BENDAMUSTINE [Concomitant]
     Active Substance: BENDAMUSTINE
     Dosage: 9X
  18. RITUXIMAB (UNKNOWN) [Suspect]
     Active Substance: RITUXIMAB
     Indication: DISEASE PROGRESSION
  19. BORTEZOMIB. [Suspect]
     Active Substance: BORTEZOMIB
     Indication: WALDENSTROM^S MACROGLOBULINAEMIA
     Dosage: DOSAGE FORM: LYOPHILIZED POWDER
     Route: 065
  20. TIGECYCLINE. [Suspect]
     Active Substance: TIGECYCLINE
     Indication: ADJUVANT THERAPY
     Dosage: UNK, DOSAGE FORM: UNSPECIFIED
     Route: 065
  21. THALIDOMIDE [Concomitant]
     Active Substance: THALIDOMIDE
     Dosage: UNK

REACTIONS (23)
  - General physical health deterioration [Fatal]
  - Palpitations [Unknown]
  - Drug ineffective [Unknown]
  - Blood pressure decreased [Unknown]
  - Body temperature increased [Not Recovered/Not Resolved]
  - Infection [Fatal]
  - Anaemia [Unknown]
  - Asthenia [Unknown]
  - Septic shock [Fatal]
  - Inflammatory marker increased [Fatal]
  - Cachexia [Not Recovered/Not Resolved]
  - Thrombocytopenia [Unknown]
  - Product use in unapproved indication [Unknown]
  - Off label use [Unknown]
  - Waldenstrom^s macroglobulinaemia [Fatal]
  - Abdominal pain upper [Unknown]
  - General physical condition abnormal [Unknown]
  - Enterococcal infection [Fatal]
  - Tenderness [Not Recovered/Not Resolved]
  - Dysphagia [Not Recovered/Not Resolved]
  - Weight decreased [Unknown]
  - Procalcitonin increased [Fatal]
  - Malignant neoplasm progression [Fatal]

NARRATIVE: CASE EVENT DATE: 2017
